FAERS Safety Report 16429499 (Version 1)
Quarter: 2019Q2

REPORT INFORMATION
  Report Type: Spontaneous
  Country: US (occurrence: US)
  Receive Date: 20190614
  Receipt Date: 20190614
  Transmission Date: 20190711
  Serious: No
  Sender: FDA-Public Use
  Company Number: US-JNJFOC-20190534704

PATIENT
  Sex: Female

DRUGS (11)
  1. QUERCETIN [Concomitant]
     Active Substance: QUERCETIN
     Indication: IMMUNE SYSTEM DISORDER
     Route: 048
  2. AMLODIPINE [Concomitant]
     Active Substance: AMLODIPINE BESYLATE
     Indication: HYPERTENSION
     Route: 065
  3. QUERCETIN [Concomitant]
     Active Substance: QUERCETIN
     Indication: IMMUNE SYSTEM DISORDER
     Route: 048
  4. PEPCID COMPLETE [Suspect]
     Active Substance: CALCIUM CARBONATE\FAMOTIDINE\MAGNESIUM HYDROXIDE
     Indication: GASTROOESOPHAGEAL REFLUX DISEASE
     Route: 048
  5. COLACE [Concomitant]
     Active Substance: DOCUSATE SODIUM
     Indication: ABNORMAL FAECES
     Route: 065
  6. PROTONIX [Concomitant]
     Active Substance: PANTOPRAZOLE SODIUM
     Indication: ANTACID THERAPY
     Route: 065
  7. VITAMIN C [Concomitant]
     Active Substance: ASCORBIC ACID
     Indication: IMMUNE SYSTEM DISORDER
     Route: 065
  8. PEPCID COMPLETE [Suspect]
     Active Substance: CALCIUM CARBONATE\FAMOTIDINE\MAGNESIUM HYDROXIDE
     Route: 048
  9. METOPROLOL. [Concomitant]
     Active Substance: METOPROLOL
     Indication: HYPERTENSION
     Route: 065
  10. VITAMIN D3 [Concomitant]
     Active Substance: CHOLECALCIFEROL
     Indication: IMMUNE SYSTEM DISORDER
     Route: 065
  11. VITAMIN B12 [Concomitant]
     Active Substance: CYANOCOBALAMIN
     Indication: BLOOD HOMOCYSTEINE
     Route: 065

REACTIONS (1)
  - Pruritus generalised [Not Recovered/Not Resolved]
